FAERS Safety Report 7386450-2 (Version None)
Quarter: 2011Q1

REPORT INFORMATION
  Report Type: 
  Country: None (occurrence: None)
  Receive Date: 20110323
  Receipt Date: 20110301
  Transmission Date: 20110831
  Serious: Yes (Hospitalization, Other)
  Sender: FDA-Public Use
  Company Number: JPI-P-010561

PATIENT
  Age: 61 Year
  Sex: Male

DRUGS (8)
  1. OMEPRAZOLE [Concomitant]
  2. ATENOLOL [Concomitant]
  3. RAMIPRIL [Concomitant]
  4. MODAFINIL [Concomitant]
  5. ATORVASTATIN CALCIUM [Concomitant]
  6. AMLODIPINE BESILATE [Concomitant]
  7. XYREM [Suspect]
     Indication: NARCOLEPSY
     Dosage: 8 GM (4 GM,2 IN 1 D),ORAL
     Route: 048
     Dates: start: 20100129, end: 20110216
  8. XYREM [Suspect]
     Indication: DYSSOMNIA
     Dosage: 8 GM (4 GM,2 IN 1 D),ORAL
     Route: 048
     Dates: start: 20100129, end: 20110216

REACTIONS (13)
  - MUSCLE TIGHTNESS [None]
  - ENURESIS [None]
  - ARTHRALGIA [None]
  - AGGRESSION [None]
  - SLEEP DISORDER [None]
  - CONFUSIONAL STATE [None]
  - ARTERIAL STENOSIS [None]
  - MIDDLE INSOMNIA [None]
  - MOVEMENT DISORDER [None]
  - AMNESIA [None]
  - ABNORMAL DREAMS [None]
  - CRYING [None]
  - EATING DISORDER [None]
